FAERS Safety Report 4636023-7 (Version None)
Quarter: 2005Q2

REPORT INFORMATION
  Report Type: 
  Country: None (occurrence: None)
  Receive Date: 20050325
  Receipt Date: 20041220
  Transmission Date: 20051028
  Serious: No
  Sender: FDA-Public Use
  Company Number: USA041286630

PATIENT
  Age: 75 Year
  Sex: Female
  Weight: 55 kg

DRUGS (2)
  1. FORTEO [Suspect]
     Indication: OSTEOPOROSIS
     Dosage: 20 UG/1 DAY
     Dates: start: 20041214
  2. PRILOSEC (OMEPRAZOLE RATIOPHARM) [Concomitant]

REACTIONS (5)
  - ABDOMINAL TENDERNESS [None]
  - BODY HEIGHT DECREASED [None]
  - DIARRHOEA [None]
  - HYPERCHLORHYDRIA [None]
  - WEIGHT DECREASED [None]
